FAERS Safety Report 26109964 (Version 3)
Quarter: 2025Q4

REPORT INFORMATION
  Report Type: Spontaneous
  Country: JP (occurrence: JP)
  Receive Date: 20251201
  Receipt Date: 20251231
  Transmission Date: 20260118
  Serious: Yes (Hospitalization, Other)
  Sender: JOHNSON AND JOHNSON
  Company Number: JP-JNJFOC-20251174356

PATIENT
  Age: 8 Decade
  Sex: Male

DRUGS (2)
  1. BALVERSA [Suspect]
     Active Substance: ERDAFITINIB
     Indication: Bladder cancer
     Route: 048
     Dates: start: 20251105, end: 20251119
  2. BALVERSA [Suspect]
     Active Substance: ERDAFITINIB
     Route: 048
     Dates: start: 20251201

REACTIONS (4)
  - Metastases to peritoneum [Unknown]
  - Renal impairment [Unknown]
  - Anaemia [Recovered/Resolved]
  - Bladder cancer [Unknown]

NARRATIVE: CASE EVENT DATE: 20250101
